FAERS Safety Report 6242207-7 (Version None)
Quarter: 2009Q2

REPORT INFORMATION
  Report Type: 
  Country: None (occurrence: None)
  Receive Date: 20090624
  Receipt Date: 20090616
  Transmission Date: 20091009
  Serious: Yes (Hospitalization)
  Sender: FDA-Public Use
  Company Number: US-ELI_LILLY_AND_COMPANY-US200906003793

PATIENT
  Sex: Female

DRUGS (2)
  1. FORTEO [Suspect]
     Dosage: UNK, UNK
  2. FORTEO [Suspect]
     Dosage: UNK, UNK

REACTIONS (3)
  - BALANCE DISORDER [None]
  - FALL [None]
  - INJECTION SITE HAEMORRHAGE [None]
